FAERS Safety Report 13633896 (Version 1)
Quarter: 2017Q2

REPORT INFORMATION
  Report Type: Spontaneous
  Country: US (occurrence: US)
  Receive Date: 20170531
  Receipt Date: 20170531
  Transmission Date: 20170830
  Serious: No
  Sender: FDA-Public Use
  Company Number: US-ASTELLAS-1587562

PATIENT
  Sex: Male

DRUGS (2)
  1. TARCEVA [Suspect]
     Active Substance: ERLOTINIB HYDROCHLORIDE
     Indication: LUNG NEOPLASM MALIGNANT
  2. TARCEVA [Suspect]
     Active Substance: ERLOTINIB HYDROCHLORIDE
     Indication: LUNG NEOPLASM MALIGNANT
     Route: 048
     Dates: start: 20150506

REACTIONS (9)
  - Ocular hyperaemia [Unknown]
  - Flatulence [Unknown]
  - Psoriasis [Unknown]
  - Erythema [Unknown]
  - Rash [Unknown]
  - Eye pain [Unknown]
  - Pain [Unknown]
  - Nasal discomfort [Unknown]
  - Abdominal pain upper [Unknown]
